FAERS Safety Report 9880795 (Version 3)
Quarter: 2014Q1

REPORT INFORMATION
  Report Type: Spontaneous
  Country: US (occurrence: US)
  Receive Date: 20140207
  Receipt Date: 20140314
  Transmission Date: 20141002
  Serious: No
  Sender: FDA-Public Use
  Company Number: US-PFIZER INC-2014034276

PATIENT
  Age: 41 Year
  Sex: Female

DRUGS (9)
  1. LYRICA [Suspect]
     Indication: PELVIC PAIN
     Dosage: 25 MG, UNK
     Route: 048
     Dates: start: 20131217, end: 20140120
  2. LYRICA [Suspect]
     Indication: NEURALGIA
     Dosage: 50 MG, UNK
     Route: 048
     Dates: start: 20131217, end: 20140120
  3. LYRICA [Suspect]
     Indication: COMPLEX REGIONAL PAIN SYNDROME
     Dosage: 100 MG, UNK
  4. PREDNISONE [Concomitant]
     Indication: COMPLEX REGIONAL PAIN SYNDROME
     Dosage: 5 MG, UNK
     Dates: start: 20131128
  5. PREDNISONE [Concomitant]
     Indication: INFLAMMATION
     Dosage: 2.5 MG, QD
  6. DIAZEPAM [Concomitant]
     Indication: VAGINISMUS
     Dosage: 2.5 MG, OHS
     Dates: start: 201201
  7. DIAZEPAM [Concomitant]
     Indication: PELVIC DEFORMITY
  8. NORVASC [Concomitant]
     Indication: LIMB DISCOMFORT
     Dosage: 2.5 MG, QHS
     Dates: start: 20131128
  9. NORVASC [Concomitant]
     Indication: VASCULAR INJURY
     Dosage: 5 MG, 1X/DAY

REACTIONS (8)
  - Off label use [Unknown]
  - Pelvic pain [Unknown]
  - Visual impairment [Recovered/Resolved]
  - Visual acuity reduced [Unknown]
  - Sedation [Unknown]
  - Feeling drunk [Unknown]
  - Depression [Unknown]
  - Fatigue [Recovered/Resolved]
